FAERS Safety Report 5837993-1 (Version None)
Quarter: 2008Q3

REPORT INFORMATION
  Report Type: 
  Country: None (occurrence: None)
  Receive Date: 20080808
  Receipt Date: 20080124
  Transmission Date: 20090109
  Serious: No
  Sender: FDA-Public Use
  Company Number: A0706402A

PATIENT
  Age: 53 Year
  Sex: Female

DRUGS (1)
  1. PAXIL [Suspect]
     Indication: ANXIETY

REACTIONS (5)
  - ALCOHOL USE [None]
  - ANXIETY [None]
  - DRY MOUTH [None]
  - LOSS OF LIBIDO [None]
  - WEIGHT INCREASED [None]
